FAERS Safety Report 24401984 (Version 1)
Quarter: 2024Q4

REPORT INFORMATION
  Report Type: Spontaneous
  Country: US (occurrence: US)
  Receive Date: 20241007
  Receipt Date: 20241007
  Transmission Date: 20250114
  Serious: Yes (Other)
  Sender: AMGEN
  Company Number: US-AMGEN-USASP2024194678

PATIENT

DRUGS (2)
  1. BEVACIZUMAB [Suspect]
     Active Substance: BEVACIZUMAB
     Indication: Dry age-related macular degeneration
     Dosage: UNK, INJECTION
     Route: 065
  2. BEVACIZUMAB [Suspect]
     Active Substance: BEVACIZUMAB
     Indication: Neovascular age-related macular degeneration

REACTIONS (4)
  - Optic ischaemic neuropathy [Unknown]
  - Retinal vasculitis [Unknown]
  - Visual acuity reduced [Unknown]
  - Off label use [Unknown]
